FAERS Safety Report 9455984 (Version 2)
Quarter: 2013Q3

REPORT INFORMATION
  Report Type: Spontaneous
  Country: US (occurrence: US)
  Receive Date: 20130813
  Receipt Date: 20130911
  Transmission Date: 20140515
  Serious: No
  Sender: FDA-Public Use
  Company Number: US-JNJFOC-20130711483

PATIENT
  Age: 33 Year
  Sex: Female

DRUGS (10)
  1. INVEGA SUSTENNA [Suspect]
     Indication: PSYCHOTIC DISORDER
     Route: 030
     Dates: start: 201308
  2. INVEGA SUSTENNA [Suspect]
     Indication: PSYCHOTIC DISORDER
     Route: 030
     Dates: start: 2012
  3. INVEGA SUSTENNA [Suspect]
     Indication: SOCIAL PHOBIA
     Route: 030
     Dates: start: 201308
  4. INVEGA SUSTENNA [Suspect]
     Indication: SOCIAL PHOBIA
     Route: 030
     Dates: start: 2012
  5. ABILIFY [Suspect]
     Indication: PSYCHOTIC DISORDER
     Route: 048
     Dates: start: 201211
  6. ABILIFY [Suspect]
     Indication: PSYCHOTIC DISORDER
     Route: 048
  7. LAMICTAL [Concomitant]
     Indication: DEPRESSION
     Route: 065
     Dates: start: 201303
  8. COLACE [Concomitant]
     Route: 065
  9. ATIVAN [Concomitant]
     Indication: ANXIETY
     Route: 065
     Dates: start: 201304
  10. NECON [Concomitant]
     Indication: CONTRACEPTION
     Route: 065
     Dates: start: 201101

REACTIONS (1)
  - Movement disorder [Recovering/Resolving]
